FAERS Safety Report 4822649-4 (Version None)
Quarter: 2005Q4

REPORT INFORMATION
  Report Type: 
  Country: None (occurrence: None)
  Receive Date: 20051107
  Receipt Date: 20051107
  Transmission Date: 20060501
  Serious: Yes (Hospitalization, Other)
  Sender: FDA-Public Use
  Company Number: None

PATIENT
  Sex: Female
  Weight: 61.2 kg

DRUGS (3)
  1. VP-16-213 [Suspect]
     Indication: ACUTE MYELOID LEUKAEMIA
     Dosage: SEE IMAGE
     Route: 042
     Dates: start: 20050926
  2. CYTARABINE [Suspect]
     Dosage: SEE IMAGE
     Route: 042
     Dates: start: 20050926
  3. G-CSF [Suspect]
     Dosage: SEE IMAGE
     Route: 058
     Dates: start: 20050926

REACTIONS (4)
  - DRUG TOLERANCE DECREASED [None]
  - MUCOSAL INFLAMMATION [None]
  - NAUSEA [None]
  - VOMITING [None]
